FAERS Safety Report 8550016-9 (Version None)
Quarter: 2012Q3

REPORT INFORMATION
  Report Type: 
  Country: None (occurrence: None)
  Receive Date: 20120730
  Receipt Date: 20120720
  Transmission Date: 20120928
  Serious: Yes (Hospitalization)
  Sender: FDA-Public Use
  Company Number: US-JNJFOC-20120707183

PATIENT
  Sex: Female
  Weight: 41.7 kg

DRUGS (4)
  1. REMICADE [Suspect]
     Indication: INFLAMMATORY BOWEL DISEASE
     Route: 042
     Dates: start: 20090826
  2. PHENAZOPYRIDINE HCL TAB [Concomitant]
  3. PREDNISONE [Concomitant]
  4. NEXIUM [Concomitant]

REACTIONS (1)
  - ILEECTOMY [None]
